FAERS Safety Report 14613325 (Version 1)
Quarter: 2018Q1

REPORT INFORMATION
  Report Type: Spontaneous
  Country: US (occurrence: US)
  Receive Date: 20180308
  Receipt Date: 20180308
  Transmission Date: 20180509
  Serious: Yes (Hospitalization, Other)
  Sender: FDA-Public Use
  Company Number: US-PFIZER INC-2017034176

PATIENT
  Age: 75 Year
  Sex: Female
  Weight: 61.22 kg

DRUGS (3)
  1. IBRANCE [Suspect]
     Active Substance: PALBOCICLIB
     Indication: BREAST CANCER METASTATIC
     Dosage: 125 MG, CYCLIC (DAILY FOR 21 DAYS, OFF FOR 7 DAYS) (125 MG DAILY D1-21 Q 28 D)
     Route: 048
     Dates: start: 2017
  2. JANUMET [Concomitant]
     Active Substance: METFORMIN HYDROCHLORIDE\SITAGLIPTIN PHOSPHATE
     Indication: DIABETES MELLITUS
     Dosage: UNK UNK, DAILY (50/1000MG 2 DAILY)
  3. LETROZOLE. [Concomitant]
     Active Substance: LETROZOLE
     Indication: BREAST CANCER METASTATIC
     Dosage: 500 MG, MONTHLY (250MG INJECTION, 2 INJECTIONS MONTHLY)
     Dates: start: 2017

REACTIONS (2)
  - Hepatic cirrhosis [Unknown]
  - Abdominal distension [Unknown]
